FAERS Safety Report 5346897-2 (Version None)
Quarter: 2007Q2

REPORT INFORMATION
  Report Type: 
  Country: None (occurrence: None)
  Receive Date: 20070501
  Receipt Date: 20060518
  Transmission Date: 20071010
  Serious: Yes (Other)
  Sender: FDA-Public Use
  Company Number: 007512

PATIENT
  Age: 54 Year
  Sex: Female

DRUGS (3)
  1. CENESTIN [Suspect]
     Dosage: ORAL
     Route: 048
     Dates: start: 20010101, end: 20020101
  2. PREMARIN [Suspect]
     Dosage: ORAL
     Route: 048
     Dates: start: 20010101, end: 20020101
  3. ESTRADERM [Suspect]
     Dosage: ORAL
     Route: 048

REACTIONS (2)
  - BREAST CANCER [None]
  - THROMBOSIS [None]
